FAERS Safety Report 9204887 (Version 1)
Quarter: 2013Q2

REPORT INFORMATION
  Report Type: Spontaneous
  Country: US (occurrence: US)
  Receive Date: 20130402
  Receipt Date: 20130402
  Transmission Date: 20140414
  Serious: Yes (Other)
  Sender: FDA-Public Use
  Company Number: US-ABBOTT-13P-163-1068493-00

PATIENT
  Age: 38 Year
  Sex: Female

DRUGS (3)
  1. HUMIRA [Suspect]
     Indication: PSORIASIS
     Dates: start: 20111129, end: 20111129
  2. HUMIRA [Suspect]
     Dates: start: 20111213, end: 201212
  3. HUMIRA [Suspect]
     Dates: start: 201302

REACTIONS (1)
  - Dysplastic naevus [Recovered/Resolved]
